FAERS Safety Report 17341175 (Version 1)
Quarter: 2020Q1

REPORT INFORMATION
  Report Type: Spontaneous
  Country: US (occurrence: US)
  Receive Date: 20200129
  Receipt Date: 20200129
  Transmission Date: 20200409
  Serious: No
  Sender: FDA-Public Use
  Company Number: US-SMITH AND NEPHEW, INC-2019SMT00012

PATIENT
  Age: 45 Year
  Sex: Male

DRUGS (6)
  1. MULTIVITAMIN [Concomitant]
     Active Substance: VITAMINS
  2. AMARYL [Concomitant]
     Active Substance: GLIMEPIRIDE
  3. REGRANEX [Suspect]
     Active Substance: BECAPLERMIN
     Indication: OSTEOMYELITIS
     Dosage: ^PENNY THICKNESS,^ 2X/DAY
     Route: 061
     Dates: start: 20190118, end: 20190119
  4. CARVEDILOL. [Concomitant]
     Active Substance: CARVEDILOL
  5. DOCUSATE SODIUM. [Concomitant]
     Active Substance: DOCUSATE SODIUM
  6. LOSARTAN AND HYDROCHLOROTHIAZIDE [Concomitant]
     Active Substance: HYDROCHLOROTHIAZIDE\LOSARTAN POTASSIUM

REACTIONS (6)
  - Chills [Recovered/Resolved]
  - Burning sensation [Recovered/Resolved]
  - Off label use [Recovered/Resolved]
  - Application site pain [Recovered/Resolved]
  - Pyrexia [Recovered/Resolved]
  - Skin hypertrophy [Recovered/Resolved]

NARRATIVE: CASE EVENT DATE: 201901
